FAERS Safety Report 4764358-6 (Version None)
Quarter: 2005Q3

REPORT INFORMATION
  Report Type: 
  Country: None (occurrence: None)
  Receive Date: 20050906
  Receipt Date: 20050825
  Transmission Date: 20060218
  Serious: Yes (Other)
  Sender: FDA-Public Use
  Company Number: 2005120280

PATIENT
  Age: 61 Year
  Sex: Female

DRUGS (3)
  1. PREDNISONE [Suspect]
     Indication: ILL-DEFINED DISORDER
  2. ENBREL [Suspect]
     Indication: RHEUMATOID ARTHRITIS
     Dosage: 50 MG (1 IN 1 WK), SUBCUTANEOUS
     Route: 058
     Dates: start: 20021123
  3. METHOTREXATE [Concomitant]

REACTIONS (4)
  - CONDITION AGGRAVATED [None]
  - PELVIC PROLAPSE [None]
  - SKIN LACERATION [None]
  - URINARY TRACT INFECTION [None]
